FAERS Safety Report 23350950 (Version 1)
Quarter: 2023Q4

REPORT INFORMATION
  Report Type: Spontaneous
  Country: KE (occurrence: None)
  Receive Date: 20231229
  Receipt Date: 20231229
  Transmission Date: 20240110
  Serious: Yes (Hospitalization)
  Sender: FDA-Public Use
  Company Number: 2023A294007

PATIENT
  Age: 21901 Day
  Sex: Male

DRUGS (1)
  1. TAGRISSO [Suspect]
     Active Substance: OSIMERTINIB
     Indication: Tumour excision
     Dosage: 80.0MG UNKNOWN
     Route: 048
     Dates: start: 20231116

REACTIONS (1)
  - Haematological infection [Recovering/Resolving]

NARRATIVE: CASE EVENT DATE: 20231218
